FAERS Safety Report 23315695 (Version 1)
Quarter: 2023Q4

REPORT INFORMATION
  Report Type: Report from Study
  Country: US (occurrence: US)
  Receive Date: 20231219
  Receipt Date: 20231219
  Transmission Date: 20240110
  Serious: Yes (Hospitalization)
  Sender: FDA-Public Use
  Company Number: US-PFIZER INC-PV202300203098

PATIENT
  Age: 56 Year
  Sex: Male

DRUGS (2)
  1. BRAFTOVI [Suspect]
     Active Substance: ENCORAFENIB
     Dosage: 4 CAPSULES OF BRAFTOVI PER DAY
  2. MEKTOVI [Suspect]
     Active Substance: BINIMETINIB
     Dosage: UNK

REACTIONS (4)
  - Hyperhidrosis [Not Recovered/Not Resolved]
  - Night sweats [Not Recovered/Not Resolved]
  - Dehydration [Unknown]
  - Pyrexia [Recovered/Resolved]
